FAERS Safety Report 21781361 (Version 1)
Quarter: 2022Q4

REPORT INFORMATION
  Report Type: Spontaneous
  Country: US (occurrence: None)
  Receive Date: 20221227
  Receipt Date: 20221227
  Transmission Date: 20230113
  Serious: Yes (Hospitalization, Other)
  Sender: FDA-Public Use
  Company Number: 2022A411769

PATIENT
  Age: 26123 Day
  Sex: Female
  Weight: 76.2 kg

DRUGS (2)
  1. FARXIGA [Suspect]
     Active Substance: DAPAGLIFLOZIN PROPANEDIOL
     Indication: Type 2 diabetes mellitus
     Route: 048
  2. METFORMIN [Suspect]
     Active Substance: METFORMIN HYDROCHLORIDE
     Dosage: 2 TABLETS IN THE MORNING AND IN THE EVENING500.0MG UNKNOWN
     Route: 065

REACTIONS (6)
  - Syncope [Unknown]
  - Dizziness [Unknown]
  - Dehydration [Unknown]
  - Urinary incontinence [Unknown]
  - Fatigue [Unknown]
  - Head injury [Unknown]

NARRATIVE: CASE EVENT DATE: 20221213
